FAERS Safety Report 25235482 (Version 2)
Quarter: 2025Q2

REPORT INFORMATION
  Report Type: Spontaneous
  Country: PK (occurrence: PK)
  Receive Date: 20250424
  Receipt Date: 20250623
  Transmission Date: 20250716
  Serious: Yes (Other)
  Sender: PFIZER
  Company Number: PK-PFIZER INC-PV202500048191

PATIENT
  Age: 31 Year
  Sex: Male
  Weight: 70 kg

DRUGS (2)
  1. IXIFI [Suspect]
     Active Substance: INFLIXIMAB-QBTX
     Indication: Ankylosing spondylitis
     Route: 042
     Dates: start: 202412
  2. IXIFI [Suspect]
     Active Substance: INFLIXIMAB-QBTX
     Indication: Iridocyclitis

REACTIONS (2)
  - Iridocyclitis [Unknown]
  - Off label use [Unknown]
